FAERS Safety Report 12136080 (Version 1)
Quarter: 2016Q1

REPORT INFORMATION
  Report Type: Spontaneous
  Country: US (occurrence: US)
  Receive Date: 20160302
  Receipt Date: 20160302
  Transmission Date: 20160526
  Serious: Yes (Life-Threatening)
  Sender: FDA-Public Use
  Company Number: US-009507513-1603USA000048

PATIENT
  Sex: Female

DRUGS (2)
  1. GRASTEK [Suspect]
     Active Substance: PHLEUM PRATENSE POLLEN
     Dosage: 2800 BAU,1 TABLET, QD
     Route: 048
     Dates: start: 201602, end: 201602
  2. RAGWITEK [Suspect]
     Active Substance: AMBROSIA ARTEMISIIFOLIA POLLEN
     Dosage: UNK

REACTIONS (2)
  - Pharyngeal oedema [Recovered/Resolved]
  - Throat tightness [Recovered/Resolved]

NARRATIVE: CASE EVENT DATE: 201602
